FAERS Safety Report 9462073 (Version 1)
Quarter: 2013Q3

REPORT INFORMATION
  Report Type: Spontaneous
  Country: US (occurrence: None)
  Receive Date: 20130815
  Receipt Date: 20130815
  Transmission Date: 20140515
  Serious: Yes (Hospitalization)
  Sender: FDA-Public Use
  Company Number: None

PATIENT
  Age: 83 Year
  Sex: Male
  Weight: 125.1 kg

DRUGS (17)
  1. XARELTO [Suspect]
     Dosage: RECENT
     Route: 048
  2. ASA [Suspect]
     Indication: THROMBOSIS PROPHYLAXIS
     Dosage: CHRONIC
     Route: 048
  3. MIRALAX [Concomitant]
  4. TRAMADOL [Concomitant]
  5. ATIVAN [Concomitant]
  6. SKELAXIN [Concomitant]
  7. XOPENEX [Concomitant]
  8. FLOMAX [Concomitant]
  9. DETROL LA [Concomitant]
  10. SOTALOL [Concomitant]
  11. DUONES [Concomitant]
  12. KCL [Concomitant]
  13. LASIX [Concomitant]
  14. ADVAIR [Concomitant]
  15. APAP [Concomitant]
  16. SENOKOT [Concomitant]
  17. METANUCI [Concomitant]

REACTIONS (3)
  - Haematuria [None]
  - Cystitis [None]
  - Haemoglobin decreased [None]
